FAERS Safety Report 5067484-X (Version None)
Quarter: 2006Q3

REPORT INFORMATION
  Report Type: 
  Country: None (occurrence: None)
  Receive Date: 20060727
  Receipt Date: 20060718
  Transmission Date: 20061208
  Serious: Yes (Other)
  Sender: FDA-Public Use
  Company Number: 2006-06-2091

PATIENT
  Age: 65 Year
  Sex: Female

DRUGS (1)
  1. INTRON A [Suspect]
     Indication: ANGIOLYMPHOID HYPERPLASIA WITH EOSINOPHILIA
     Dosage: 9 MIU QWK SUBCUTANEOUS
     Route: 058
     Dates: start: 20040920, end: 20051125

REACTIONS (5)
  - ACUTE RESPIRATORY FAILURE [None]
  - CHEST X-RAY ABNORMAL [None]
  - COMPUTERISED TOMOGRAM ABNORMAL [None]
  - HYPERSENSITIVITY [None]
  - LUNG INFILTRATION [None]
